FAERS Safety Report 17952703 (Version 1)
Quarter: 2020Q2

REPORT INFORMATION
  Report Type: Spontaneous
  Country: US (occurrence: US)
  Receive Date: 20200627
  Receipt Date: 20200627
  Transmission Date: 20200714
  Serious: No
  Sender: FDA-Public Use
  Company Number: US-AMGEN-USASP2020102031

PATIENT
  Sex: Female

DRUGS (1)
  1. AIMOVIG [Suspect]
     Active Substance: ERENUMAB-AOOE
     Indication: MIGRAINE
     Dosage: UNK
     Route: 065

REACTIONS (8)
  - Injection site reaction [Unknown]
  - Arthralgia [Unknown]
  - Constipation [Unknown]
  - Rash [Unknown]
  - Dysphagia [Unknown]
  - Dyspepsia [Unknown]
  - Weight increased [Unknown]
  - Nausea [Unknown]
